FAERS Safety Report 14951173 (Version 11)
Quarter: 2019Q1

REPORT INFORMATION
  Report Type: Report from Study
  Country: PL (occurrence: PL)
  Receive Date: 20180530
  Receipt Date: 20190131
  Transmission Date: 20190417
  Serious: Yes (Hospitalization)
  Sender: FDA-Public Use
  Company Number: PL-ROCHE-2126672

PATIENT
  Age: 51 Year
  Sex: Male
  Weight: 94 kg

DRUGS (98)
  1. DICLAC [Concomitant]
     Active Substance: DICLOFENAC
     Route: 065
     Dates: start: 20181211, end: 20181211
  2. RANIGAST [Concomitant]
     Route: 065
     Dates: start: 20180807, end: 20180807
  3. RANIGAST [Concomitant]
     Route: 065
     Dates: start: 20181127, end: 20181127
  4. ONDANSETRON [Concomitant]
     Active Substance: ONDANSETRON
     Indication: PREMEDICATION
     Route: 065
     Dates: start: 20180515, end: 20180515
  5. ONDANSETRON [Concomitant]
     Active Substance: ONDANSETRON
     Route: 065
     Dates: start: 20181016, end: 20181016
  6. KETONAL (POLAND) [Concomitant]
     Indication: PROPHYLAXIS
     Route: 065
     Dates: start: 20180516, end: 20180517
  7. PARACETAMOL [Concomitant]
     Active Substance: ACETAMINOPHEN
     Indication: PREMEDICATION
     Route: 065
     Dates: start: 20180612, end: 20180612
  8. PARACETAMOL [Concomitant]
     Active Substance: ACETAMINOPHEN
     Route: 065
     Dates: start: 20180710, end: 20180710
  9. PARACETAMOL [Concomitant]
     Active Substance: ACETAMINOPHEN
     Route: 065
     Dates: start: 20181113, end: 20181113
  10. RO 6874281 (FAP IL2V MAB) [Suspect]
     Active Substance: RO-6874281
     Indication: NON-SMALL CELL LUNG CANCER
     Dosage: AS PER PROTOCOL: RO6874281 INTRAVENOUS (IV) INFUSION ONCE IN A WEEK (QW) FOR FIRST 4 DOSES, AND ONCE
     Route: 042
     Dates: start: 20180515
  11. PERFALGAN [Concomitant]
     Active Substance: ACETAMINOPHEN
     Route: 065
     Dates: start: 20180529, end: 20180529
  12. PERFALGAN [Concomitant]
     Active Substance: ACETAMINOPHEN
     Route: 065
     Dates: start: 20180515, end: 20180517
  13. DICLAC [Concomitant]
     Active Substance: DICLOFENAC
     Route: 065
     Dates: start: 20180626, end: 20180626
  14. DICLAC [Concomitant]
     Active Substance: DICLOFENAC
     Route: 065
     Dates: start: 20181016, end: 20181016
  15. DICLAC [Concomitant]
     Active Substance: DICLOFENAC
     Route: 065
     Dates: start: 20181113, end: 20181113
  16. RANIGAST [Concomitant]
     Indication: PREMEDICATION
     Route: 065
     Dates: start: 20180515, end: 20180515
  17. RANIGAST [Concomitant]
     Route: 065
     Dates: start: 20180605, end: 20180605
  18. ONDANSETRON [Concomitant]
     Active Substance: ONDANSETRON
     Route: 065
     Dates: start: 20181030, end: 20181030
  19. ONDANSETRON [Concomitant]
     Active Substance: ONDANSETRON
     Route: 065
     Dates: start: 20181127, end: 20181127
  20. PANTOPRAZOLE [Concomitant]
     Active Substance: PANTOPRAZOLE
     Indication: PROPHYLAXIS
     Route: 065
     Dates: start: 20180516, end: 20180516
  21. PARACETAMOL [Concomitant]
     Active Substance: ACETAMINOPHEN
     Indication: PROPHYLAXIS
     Route: 065
     Dates: start: 20180626, end: 20180626
  22. PARACETAMOL [Concomitant]
     Active Substance: ACETAMINOPHEN
     Route: 065
     Dates: start: 20181127, end: 20181127
  23. PERFALGAN [Concomitant]
     Active Substance: ACETAMINOPHEN
     Route: 065
     Dates: start: 20181002, end: 20181002
  24. DICLAC [Concomitant]
     Active Substance: DICLOFENAC
     Route: 065
     Dates: start: 20180821, end: 20180821
  25. DICLAC [Concomitant]
     Active Substance: DICLOFENAC
     Route: 065
     Dates: start: 20180918, end: 20180918
  26. DICLAC [Concomitant]
     Active Substance: DICLOFENAC
     Route: 065
     Dates: start: 20181002, end: 20181002
  27. RANIGAST [Concomitant]
     Route: 065
     Dates: start: 20190108, end: 20190108
  28. ONDANSETRON [Concomitant]
     Active Substance: ONDANSETRON
     Route: 065
     Dates: start: 20180529, end: 20180529
  29. ONDANSETRON [Concomitant]
     Active Substance: ONDANSETRON
     Route: 065
     Dates: start: 20180807, end: 20180807
  30. ONDANSETRON [Concomitant]
     Active Substance: ONDANSETRON
     Route: 065
     Dates: start: 20180904, end: 20180904
  31. ONDANSETRON [Concomitant]
     Active Substance: ONDANSETRON
     Route: 065
     Dates: start: 20180724, end: 20180724
  32. NEOPARIN [Concomitant]
     Route: 065
     Dates: start: 20180530
  33. PARACETAMOL [Concomitant]
     Active Substance: ACETAMINOPHEN
     Route: 065
     Dates: start: 20180605, end: 20180607
  34. PARACETAMOL [Concomitant]
     Active Substance: ACETAMINOPHEN
     Route: 065
     Dates: start: 20180918, end: 20180918
  35. PARACETAMOL [Concomitant]
     Active Substance: ACETAMINOPHEN
     Route: 065
     Dates: start: 20190108, end: 20190108
  36. ATEZOLIZUMAB. [Suspect]
     Active Substance: ATEZOLIZUMAB
     Indication: NON-SMALL CELL LUNG CANCER
     Dosage: AS PER PROTOCOL: ATEZOLIZUMAB IV INFUSION WILL BE ADMINISTERED IN COMBINATION Q2W AT A DOSE OF 840 M
     Route: 042
     Dates: start: 20180515
  37. DICLAC [Concomitant]
     Active Substance: DICLOFENAC
     Route: 065
     Dates: start: 20180904, end: 20180904
  38. DICLAC [Concomitant]
     Active Substance: DICLOFENAC
     Route: 065
     Dates: start: 20181227, end: 20181227
  39. RANIGAST [Concomitant]
     Route: 065
     Dates: start: 20180529, end: 20180529
  40. RANIGAST [Concomitant]
     Route: 065
     Dates: start: 20180904, end: 20180904
  41. MILURIT [Concomitant]
     Active Substance: ALLOPURINOL
     Indication: PROPHYLAXIS
     Route: 065
     Dates: start: 20180530
  42. KETONAL (POLAND) [Concomitant]
     Route: 065
     Dates: start: 20180529, end: 20180601
  43. PARACETAMOL [Concomitant]
     Active Substance: ACETAMINOPHEN
     Route: 065
     Dates: start: 20180529, end: 20180601
  44. PARACETAMOL [Concomitant]
     Active Substance: ACETAMINOPHEN
     Route: 065
     Dates: start: 20180807, end: 20180807
  45. PARACETAMOL [Concomitant]
     Active Substance: ACETAMINOPHEN
     Route: 065
     Dates: start: 20180724, end: 20180724
  46. LOW MOLECULAR WEIGHT HEPARIN [Concomitant]
     Active Substance: UNSPECIFIED INGREDIENT
  47. PERFALGAN [Concomitant]
     Active Substance: ACETAMINOPHEN
     Indication: PREMEDICATION
     Route: 065
     Dates: start: 20180515, end: 20180515
  48. DICLAC [Concomitant]
     Active Substance: DICLOFENAC
     Route: 065
     Dates: start: 20180529, end: 20180529
  49. DICLAC [Concomitant]
     Active Substance: DICLOFENAC
     Route: 065
     Dates: start: 20180710, end: 20180710
  50. DICLAC [Concomitant]
     Active Substance: DICLOFENAC
     Route: 065
     Dates: start: 20181030, end: 20181030
  51. DICLAC [Concomitant]
     Active Substance: DICLOFENAC
     Route: 065
     Dates: start: 20180724, end: 20180724
  52. RANIGAST [Concomitant]
     Route: 065
     Dates: start: 20180626, end: 20180626
  53. RANIGAST [Concomitant]
     Route: 065
     Dates: start: 20180918, end: 20180918
  54. RANIGAST [Concomitant]
     Route: 065
     Dates: start: 20181113, end: 20181113
  55. ONDANSETRON [Concomitant]
     Active Substance: ONDANSETRON
     Route: 065
     Dates: start: 20180710, end: 20180710
  56. ONDANSETRON [Concomitant]
     Active Substance: ONDANSETRON
     Route: 065
     Dates: start: 20181211, end: 20181211
  57. ONDANSETRON [Concomitant]
     Active Substance: ONDANSETRON
     Route: 065
     Dates: start: 20190108, end: 20190108
  58. ENOXAPARIN [Concomitant]
     Active Substance: ENOXAPARIN
     Indication: PROPHYLAXIS
     Route: 065
     Dates: start: 20180521
  59. KETONAL (POLAND) [Concomitant]
     Route: 065
     Dates: start: 20180606, end: 20180607
  60. PARACETAMOL [Concomitant]
     Active Substance: ACETAMINOPHEN
     Route: 065
     Dates: start: 20180904, end: 20180904
  61. PARACETAMOL [Concomitant]
     Active Substance: ACETAMINOPHEN
     Route: 065
     Dates: start: 20181211, end: 20181211
  62. RANIGAST [Concomitant]
     Route: 065
     Dates: start: 20180612, end: 20180612
  63. RANIGAST [Concomitant]
     Route: 065
     Dates: start: 20190122, end: 20190122
  64. RANIGAST [Concomitant]
     Route: 065
     Dates: start: 20180724, end: 20180724
  65. ONDANSETRON [Concomitant]
     Active Substance: ONDANSETRON
     Route: 065
     Dates: start: 20180626, end: 20180626
  66. ONDANSETRON [Concomitant]
     Active Substance: ONDANSETRON
     Route: 065
     Dates: start: 20180821, end: 20180821
  67. ONDANSETRON [Concomitant]
     Active Substance: ONDANSETRON
     Route: 065
     Dates: start: 20181113, end: 20181113
  68. PARACETAMOL [Concomitant]
     Active Substance: ACETAMINOPHEN
     Route: 065
     Dates: start: 20181030, end: 20181030
  69. PARACETAMOL [Concomitant]
     Active Substance: ACETAMINOPHEN
     Route: 065
     Dates: start: 20190122, end: 20190122
  70. PERFALGAN [Concomitant]
     Active Substance: ACETAMINOPHEN
     Route: 065
     Dates: start: 20180605, end: 20180605
  71. PERFALGAN [Concomitant]
     Active Substance: ACETAMINOPHEN
     Route: 065
     Dates: start: 20180612, end: 20180613
  72. PERFALGAN [Concomitant]
     Active Substance: ACETAMINOPHEN
     Route: 065
     Dates: start: 20181016, end: 20181016
  73. DICLAC [Concomitant]
     Active Substance: DICLOFENAC
     Route: 065
     Dates: start: 20180605, end: 20180605
  74. DICLAC [Concomitant]
     Active Substance: DICLOFENAC
     Route: 065
     Dates: start: 20180612, end: 20180612
  75. DICLAC [Concomitant]
     Active Substance: DICLOFENAC
     Route: 065
     Dates: start: 20180807, end: 20180807
  76. DICLAC [Concomitant]
     Active Substance: DICLOFENAC
     Route: 065
     Dates: start: 20181127, end: 20181127
  77. RANIGAST [Concomitant]
     Route: 065
     Dates: start: 20180710, end: 20180710
  78. RANIGAST [Concomitant]
     Route: 065
     Dates: start: 20181002, end: 20181002
  79. ONDANSETRON [Concomitant]
     Active Substance: ONDANSETRON
     Route: 065
     Dates: start: 20180605, end: 20180605
  80. ONDANSETRON [Concomitant]
     Active Substance: ONDANSETRON
     Route: 065
     Dates: start: 20180612, end: 20180612
  81. ONDANSETRON [Concomitant]
     Active Substance: ONDANSETRON
     Route: 065
     Dates: start: 20181002, end: 20181002
  82. POLPRAZOL [Concomitant]
     Active Substance: OMEPRAZOLE
     Route: 065
     Dates: start: 20180516, end: 20180517
  83. PARACETAMOL [Concomitant]
     Active Substance: ACETAMINOPHEN
     Route: 065
     Dates: start: 20180821, end: 20180821
  84. PARACETAMOL [Concomitant]
     Active Substance: ACETAMINOPHEN
     Route: 065
     Dates: start: 20181227, end: 20181227
  85. DICLAC [Concomitant]
     Active Substance: DICLOFENAC
     Indication: PREMEDICATION
     Route: 065
     Dates: start: 20180515, end: 20180515
  86. DICLAC [Concomitant]
     Active Substance: DICLOFENAC
     Route: 065
     Dates: start: 20190108, end: 20190108
  87. DICLAC [Concomitant]
     Active Substance: DICLOFENAC
     Route: 065
     Dates: start: 20190122, end: 20190122
  88. RANIGAST [Concomitant]
     Route: 065
     Dates: start: 20180821, end: 20180821
  89. RANIGAST [Concomitant]
     Route: 065
     Dates: start: 20181016, end: 20181016
  90. RANIGAST [Concomitant]
     Route: 065
     Dates: start: 20181030, end: 20181030
  91. RANIGAST [Concomitant]
     Route: 065
     Dates: start: 20181211, end: 20181211
  92. RANIGAST [Concomitant]
     Route: 065
     Dates: start: 20181227, end: 20181227
  93. ONDANSETRON [Concomitant]
     Active Substance: ONDANSETRON
     Route: 065
     Dates: start: 20180918, end: 20180918
  94. ONDANSETRON [Concomitant]
     Active Substance: ONDANSETRON
     Route: 065
     Dates: start: 20181227, end: 20181227
  95. ONDANSETRON [Concomitant]
     Active Substance: ONDANSETRON
     Route: 065
     Dates: start: 20190122, end: 20190122
  96. NEOPARIN [Concomitant]
     Route: 065
     Dates: start: 20180525
  97. POLPRAZOL [Concomitant]
     Active Substance: OMEPRAZOLE
     Indication: PROPHYLAXIS
     Route: 065
     Dates: start: 20180517, end: 20180517
  98. PARACETAMOL [Concomitant]
     Active Substance: ACETAMINOPHEN
     Route: 065
     Dates: start: 20180515, end: 20180517

REACTIONS (1)
  - Systemic immune activation [Recovered/Resolved]

NARRATIVE: CASE EVENT DATE: 20180517
